FAERS Safety Report 9266191 (Version 1)
Quarter: 2013Q2

REPORT INFORMATION
  Report Type: Spontaneous
  Country: US (occurrence: US)
  Receive Date: 20130502
  Receipt Date: 20130502
  Transmission Date: 20140414
  Serious: Yes (Death)
  Sender: FDA-Public Use
  Company Number: US-ROCHE-1138634

PATIENT
  Age: 53 Year
  Sex: Female
  Weight: 74.46 kg

DRUGS (2)
  1. XELODA [Suspect]
     Indication: BREAST CANCER METASTATIC
     Route: 065
     Dates: start: 20120115, end: 201208
  2. BLOOD NOS [Concomitant]
     Route: 065
     Dates: start: 201202

REACTIONS (3)
  - Thrombosis [Unknown]
  - Drug effect decreased [Unknown]
  - Death [Fatal]
